FAERS Safety Report 18528317 (Version 1)
Quarter: 2020Q4

REPORT INFORMATION
  Report Type: Spontaneous
  Country: US (occurrence: US)
  Receive Date: 20201120
  Receipt Date: 20201120
  Transmission Date: 20210114
  Serious: No
  Sender: FDA-Public Use
  Company Number: US-PFIZER INC-2018444619

PATIENT
  Age: 50 Year
  Sex: Male

DRUGS (1)
  1. REVATIO [Suspect]
     Active Substance: SILDENAFIL CITRATE
     Indication: DERMATOMYOSITIS
     Dosage: 20 MG, 3X/DAY
     Route: 048

REACTIONS (2)
  - Hypoaesthesia [Unknown]
  - Off label use [Unknown]
